FAERS Safety Report 4359568-6 (Version None)
Quarter: 2004Q2

REPORT INFORMATION
  Report Type: 
  Country: None (occurrence: None)
  Receive Date: 20040512
  Receipt Date: 20040427
  Transmission Date: 20050107
  Serious: Yes (Other)
  Sender: FDA-Public Use
  Company Number: EWC040439010

PATIENT
  Age: 57 Year
  Sex: Male

DRUGS (3)
  1. XIGRIS (DROTRECOGIN ALFA (ACTIVATED) [Suspect]
     Indication: ADENOCARCINOMA PANCREAS
     Dosage: 24 MG/KG/HR
     Dates: start: 20040426, end: 20040427
  2. XIGRIS (DROTRECOGIN ALFA (ACTIVATED) [Suspect]
     Indication: SEPSIS
     Dosage: 24 MG/KG/HR
     Dates: start: 20040426, end: 20040427
  3. ANTIBIOTIC [Concomitant]

REACTIONS (1)
  - PLATELET COUNT DECREASED [None]
